FAERS Safety Report 23260075 (Version 1)
Quarter: 2023Q4

REPORT INFORMATION
  Report Type: Spontaneous
  Country: US (occurrence: US)
  Receive Date: 20231204
  Receipt Date: 20231204
  Transmission Date: 20240110
  Serious: No
  Sender: FDA-Public Use
  Company Number: US-009507513-2311USA011095

PATIENT
  Sex: Female

DRUGS (10)
  1. CUBICIN [Suspect]
     Active Substance: DAPTOMYCIN
     Indication: Enterococcal bacteraemia
  2. ADALIMUMAB [Concomitant]
     Active Substance: ADALIMUMAB\ISOPROPYL ALCOHOL
     Indication: Crohn^s disease
  3. RITUXIMAB [Concomitant]
     Active Substance: RITUXIMAB
     Indication: Philadelphia positive acute lymphocytic leukaemia
  4. CYCLOPHOSPHAMIDE [Concomitant]
     Active Substance: CYCLOPHOSPHAMIDE
     Indication: Philadelphia positive acute lymphocytic leukaemia
  5. VINCRISTINE [Concomitant]
     Active Substance: VINCRISTINE
     Indication: Philadelphia positive acute lymphocytic leukaemia
  6. ADRIAMYCIN [Concomitant]
     Active Substance: DOXORUBICIN HYDROCHLORIDE
     Indication: Philadelphia positive acute lymphocytic leukaemia
  7. DEXAMETHASONE [Concomitant]
     Active Substance: DEXAMETHASONE
     Indication: Philadelphia positive acute lymphocytic leukaemia
  8. METHOTREXATE [Concomitant]
     Active Substance: METHOTREXATE
     Indication: Philadelphia positive acute lymphocytic leukaemia
     Route: 037
  9. DASATINIB [Concomitant]
     Active Substance: DASATINIB
     Indication: Philadelphia positive acute lymphocytic leukaemia
     Dosage: 140 MILLIGRAM, QD
  10. ARIPIPRAZOLE [Concomitant]
     Active Substance: ARIPIPRAZOLE
     Indication: Major depression

REACTIONS (1)
  - Product use in unapproved indication [Unknown]
